FAERS Safety Report 20774793 (Version 1)
Quarter: 2022Q2

REPORT INFORMATION
  Report Type: Spontaneous
  Country: ES (occurrence: None)
  Receive Date: 20220502
  Receipt Date: 20220502
  Transmission Date: 20220721
  Serious: Yes (Other)
  Sender: FDA-Public Use
  Company Number: ES-Fresenius Kabi-FK202205003

PATIENT
  Age: 79 Year
  Sex: Male

DRUGS (2)
  1. LINEZOLID [Suspect]
     Active Substance: LINEZOLID
     Indication: Lemierre syndrome
     Dosage: ANTIBACTERIAL TREATMENT
  2. PIPERACILLIN SODIUM\TAZOBACTAM SODIUM [Suspect]
     Active Substance: PIPERACILLIN SODIUM\TAZOBACTAM SODIUM
     Indication: Lemierre syndrome
     Dosage: ANTIBACTERIAL TREATMENT

REACTIONS (1)
  - Haematotoxicity [Unknown]
